FAERS Safety Report 5417551-3 (Version None)
Quarter: 2007Q3

REPORT INFORMATION
  Report Type: 
  Country: None (occurrence: None)
  Receive Date: 20070718
  Receipt Date: 20060810
  Transmission Date: 20080115
  Serious: Yes (Other)
  Sender: FDA-Public Use
  Company Number: 2005122895

PATIENT
  Age: 62 Year
  Sex: Male
  Weight: 94.8018 kg

DRUGS (2)
  1. CELEBREX [Suspect]
  2. VIOXX [Suspect]

REACTIONS (1)
  - CORONARY ARTERY DISEASE [None]
